FAERS Safety Report 14879639 (Version 3)
Quarter: 2019Q4

REPORT INFORMATION
  Report Type: Spontaneous
  Country: GB (occurrence: GB)
  Receive Date: 20180511
  Receipt Date: 20191010
  Transmission Date: 20200122
  Serious: Yes (Other)
  Sender: FDA-Public Use
  Company Number: GB-DRREDDYS-GER/UKI/18/0098798

PATIENT
  Age: 32 Year
  Sex: Female

DRUGS (10)
  1. AMISULPRIDE [Suspect]
     Active Substance: AMISULPRIDE
     Indication: HALLUCINATION, AUDITORY
     Dosage: DOSAGE FORM: UNKNOWN
     Route: 065
  2. QUETIAPINE. [Suspect]
     Active Substance: QUETIAPINE
     Indication: PRODUCT USED FOR UNKNOWN INDICATION
  3. CLOZARIL [Suspect]
     Active Substance: CLOZAPINE
     Indication: SCHIZOPHRENIA
     Route: 048
     Dates: start: 20180205
  4. HALOPERIDOL. [Suspect]
     Active Substance: HALOPERIDOL
     Indication: HALLUCINATION, AUDITORY
     Dosage: DOSAGE FORM: UNSPECIFIED
     Route: 065
  5. ARIPIPRAZOLE. [Suspect]
     Active Substance: ARIPIPRAZOLE
     Indication: PRODUCT USED FOR UNKNOWN INDICATION
  6. ZUCLOPENTHIXOL [Suspect]
     Active Substance: ZUCLOPENTHIXOL
     Indication: HALLUCINATION, AUDITORY
     Dosage: DOSAGE FORM: UNKNOWN
  7. CLOZARIL [Suspect]
     Active Substance: CLOZAPINE
     Indication: SCHIZOAFFECTIVE DISORDER
     Route: 048
     Dates: start: 2019
  8. RISPERIDONE. [Suspect]
     Active Substance: RISPERIDONE
     Indication: HALLUCINATION, AUDITORY
     Dosage: DOSAGE FORM: UNSPECIFIED
     Route: 065
  9. OLANZAPINE. [Suspect]
     Active Substance: OLANZAPINE
     Indication: HALLUCINATION, AUDITORY
     Dosage: DOSAGE FORM: UNKNOWN
     Route: 065
  10. CLOZARIL [Suspect]
     Active Substance: CLOZAPINE
     Route: 048
     Dates: start: 201909

REACTIONS (5)
  - Schizophrenia [Unknown]
  - Product use in unapproved indication [Unknown]
  - Suicidal ideation [Unknown]
  - Drug ineffective [Unknown]
  - Neutropenia [Recovered/Resolved]

NARRATIVE: CASE EVENT DATE: 2018
